FAERS Safety Report 14731715 (Version 1)
Quarter: 2018Q2

REPORT INFORMATION
  Report Type: Report from Study
  Country: US (occurrence: US)
  Receive Date: 20180407
  Receipt Date: 20180407
  Transmission Date: 20180711
  Serious: Yes (Disabling)
  Sender: FDA-Public Use
  Company Number: PHEH2018US012577

PATIENT
  Age: 58 Year
  Sex: Female
  Weight: 81.64 kg

DRUGS (1)
  1. GILENYA [Suspect]
     Active Substance: FINGOLIMOD HYDROCHLORIDE
     Indication: PRODUCT USED FOR UNKNOWN INDICATION
     Dosage: 0.5 MG, QD
     Route: 048
     Dates: start: 20180205, end: 20180307

REACTIONS (8)
  - Chromaturia [Recovering/Resolving]
  - Abdominal pain lower [Recovering/Resolving]
  - Alanine aminotransferase increased [Recovering/Resolving]
  - Upper respiratory tract infection [Recovering/Resolving]
  - Rhinorrhoea [Recovering/Resolving]
  - Back pain [Recovering/Resolving]
  - Cough [Recovering/Resolving]
  - Aspartate aminotransferase increased [Recovering/Resolving]

NARRATIVE: CASE EVENT DATE: 20180206
